FAERS Safety Report 16804471 (Version 1)
Quarter: 2019Q3

REPORT INFORMATION
  Report Type: Spontaneous
  Country: US (occurrence: US)
  Receive Date: 20190913
  Receipt Date: 20190913
  Transmission Date: 20191005
  Serious: No
  Sender: FDA-Public Use
  Company Number: US-PFIZER INC-2019396022

PATIENT
  Age: 88 Year
  Sex: Female
  Weight: 58.96 kg

DRUGS (1)
  1. LATANOPROST. [Suspect]
     Active Substance: LATANOPROST
     Indication: GLAUCOMA
     Dosage: 1 GTT, 1X/DAY (AT NIGHT)
     Dates: start: 2019

REACTIONS (3)
  - Nasal discomfort [Not Recovered/Not Resolved]
  - Taste disorder [Not Recovered/Not Resolved]
  - Parosmia [Not Recovered/Not Resolved]

NARRATIVE: CASE EVENT DATE: 2019
